FAERS Safety Report 5672687-7 (Version None)
Quarter: 2008Q1

REPORT INFORMATION
  Report Type: 
  Country: None (occurrence: None)
  Receive Date: 20080319
  Receipt Date: 20070315
  Transmission Date: 20080703
  Serious: No
  Sender: FDA-Public Use
  Company Number: US-KINGPHARMUSA00001-K200700307

PATIENT

DRUGS (7)
  1. ALTACE [Suspect]
     Indication: BLOOD PRESSURE ABNORMAL
     Dosage: 2.5 MG, QD
     Route: 048
     Dates: start: 20061001
  2. ALTACE [Suspect]
     Indication: PROPHYLAXIS
     Dosage: 5 MG, QD
     Route: 048
  3. ALTACE [Suspect]
     Dosage: 10 MG, QD
     Route: 048
     Dates: start: 20061201
  4. SYNTHROID [Concomitant]
     Dosage: 75 MCG, UNK
  5. PRAVACHOL [Concomitant]
     Dosage: 20 MG, UNK
  6. HYDROCHLOROTHIAZIDE [Concomitant]
     Dosage: 12.5 MG, QD
     Route: 048
  7. RHINOCORT                          /00614601/ [Concomitant]

REACTIONS (6)
  - BALANCE DISORDER [None]
  - DIZZINESS [None]
  - DYSPHAGIA [None]
  - EAR DISCOMFORT [None]
  - FEELING ABNORMAL [None]
  - HEARING IMPAIRED [None]
